FAERS Safety Report 16671526 (Version 3)
Quarter: 2019Q3

REPORT INFORMATION
  Report Type: Report from Study
  Country: US (occurrence: US)
  Receive Date: 20190806
  Receipt Date: 20190917
  Transmission Date: 20191004
  Serious: Yes (Other)
  Sender: FDA-Public Use
  Company Number: US-MTPC-MTDA2019-0066395

PATIENT

DRUGS (4)
  1. EDARAVONE INJ [Suspect]
     Active Substance: EDARAVONE
     Dosage: 60 MG OVER 60 MIN, QD FOR 10 DAYS OUT OF 14 DAY PERIODS FOLLOWED BY A 14 DAY DRUG FREE PERIODS
     Route: 042
     Dates: end: 20190821
  2. EDARAVONE INJ [Suspect]
     Active Substance: EDARAVONE
     Indication: AMYOTROPHIC LATERAL SCLEROSIS
     Dosage: 60 MG OVER 60 MIN, QD FOR 14 DAYS FOLLOWED BY A 14 DAY DRUG FREE PERIOD
     Route: 042
     Dates: start: 20180930
  3. RILUZOLE. [Concomitant]
     Active Substance: RILUZOLE
     Indication: AMYOTROPHIC LATERAL SCLEROSIS
     Dosage: 50 MILLIGRAM EVERY 12 HOURS
     Route: 048
  4. ZANAFLEX [Concomitant]
     Active Substance: TIZANIDINE HYDROCHLORIDE
     Indication: MUSCLE SPASMS
     Dosage: 1 MILLIGRAM AT BEDTIME
     Route: 048

REACTIONS (3)
  - Influenza like illness [Recovered/Resolved]
  - Trismus [Recovered/Resolved]
  - Muscle spasms [Recovered/Resolved]

NARRATIVE: CASE EVENT DATE: 20190711
